FAERS Safety Report 16573614 (Version 1)
Quarter: 2019Q3

REPORT INFORMATION
  Report Type: Spontaneous
  Country: MX (occurrence: MX)
  Receive Date: 20190715
  Receipt Date: 20190715
  Transmission Date: 20191004
  Serious: Yes (Other)
  Sender: FDA-Public Use
  Company Number: MX-ASTRAZENECA-2019SE53360

PATIENT
  Age: 21945 Day
  Sex: Male
  Weight: 83 kg

DRUGS (16)
  1. COZAAR [Concomitant]
     Active Substance: LOSARTAN POTASSIUM
     Indication: HYPERTENSION
     Route: 048
     Dates: start: 20160101
  2. ZYLOPRIM [Concomitant]
     Active Substance: ALLOPURINOL
     Indication: BLOOD URIC ACID ABNORMAL
     Route: 048
     Dates: start: 20180201, end: 20180501
  3. ORAXADIN [Concomitant]
     Indication: BLOOD TRIGLYCERIDES ABNORMAL
     Route: 048
     Dates: start: 2016
  4. PROSGUTT [Concomitant]
     Indication: PROSTATE INFECTION
     Dosage: 1 DAILY
     Route: 048
     Dates: start: 2017, end: 20190412
  5. BRDELIN [Concomitant]
     Dosage: 500 MG 1 TABLET WITH 12 HRS
     Route: 048
     Dates: start: 20190412
  6. ZYLOPRIM [Concomitant]
     Active Substance: ALLOPURINOL
     Indication: DROP ATTACKS
     Route: 048
     Dates: start: 20160101, end: 20170101
  7. NEXIUM [Suspect]
     Active Substance: ESOMEPRAZOLE MAGNESIUM
     Indication: GASTRITIS
     Dosage: 1 TABLET FOR A MONTH AND TWO WEEKS
     Route: 048
     Dates: start: 2018
  8. CELEBREX [Concomitant]
     Active Substance: CELECOXIB
     Indication: BENIGN PROSTATIC HYPERPLASIA
     Route: 048
  9. NEXIUM [Suspect]
     Active Substance: ESOMEPRAZOLE MAGNESIUM
     Indication: GASTRITIS
     Route: 048
     Dates: start: 20160101
  10. UNIVAL [Concomitant]
     Indication: GASTRITIS
     Route: 048
     Dates: start: 2018
  11. DABEX [Concomitant]
     Indication: GLUCOSE TOLERANCE IMPAIRED
     Route: 048
     Dates: start: 2016
  12. ZYLOPRIM [Concomitant]
     Active Substance: ALLOPURINOL
     Indication: BLOOD URIC ACID ABNORMAL
     Route: 048
     Dates: start: 20160101, end: 20170101
  13. ZYLOPRIM [Concomitant]
     Active Substance: ALLOPURINOL
     Indication: DROP ATTACKS
     Route: 048
     Dates: start: 20180201, end: 20180501
  14. VITAMIIN D [Concomitant]
     Dosage: 5000 IU 1 TABLET WITH 3RD DAY
     Route: 048
     Dates: start: 2017
  15. MAGNESIUM [Concomitant]
     Active Substance: MAGNESIUM
     Indication: MUSCLE SPASMS
     Route: 048
     Dates: start: 20170101
  16. COMBODART [Concomitant]
     Active Substance: DUTASTERIDE\TAMSULOSIN
     Indication: BENIGN PROSTATIC HYPERPLASIA
     Dosage: 0.5 / 0.4 MG
     Dates: start: 20190412

REACTIONS (12)
  - Haemorrhoids [Not Recovered/Not Resolved]
  - Weight increased [Not Recovered/Not Resolved]
  - Drop attacks [Recovered/Resolved]
  - Drug ineffective [Recovered/Resolved]
  - Depression [Not Recovered/Not Resolved]
  - Prostatic specific antigen increased [Unknown]
  - Muscle spasms [Not Recovered/Not Resolved]
  - Prostate infection [Not Recovered/Not Resolved]
  - Benign prostatic hyperplasia [Not Recovered/Not Resolved]
  - Stress [Not Recovered/Not Resolved]
  - Anxiety [Not Recovered/Not Resolved]
  - Diarrhoea [Not Recovered/Not Resolved]

NARRATIVE: CASE EVENT DATE: 20170101
